FAERS Safety Report 5463066-6 (Version None)
Quarter: 2007Q3

REPORT INFORMATION
  Report Type: 
  Country: None (occurrence: None)
  Receive Date: 20070918
  Receipt Date: 20070918
  Transmission Date: 20080115
  Serious: Yes (Hospitalization)
  Sender: FDA-Public Use
  Company Number: None

PATIENT
  Sex: Male

DRUGS (15)
  1. BEVACIZUMAB (GENENTECH) [Suspect]
     Indication: GLIOBLASTOMA MULTIFORME
     Dosage: 10 MG/KG
  2. ERLOTINIB (GENENTECH) [Suspect]
     Indication: GLIOBLASTOMA MULTIFORME
     Dosage: 200 MG/DAY
  3. DEXAMETHASONE 0.5MG TAB [Concomitant]
  4. LUNESTA [Concomitant]
  5. TYLENOL (CAPLET) [Concomitant]
  6. POTASSIUM CHLORIDE [Concomitant]
  7. LASIX [Concomitant]
  8. VYTORIN [Concomitant]
  9. TOPROL-XL [Concomitant]
  10. HYTRIN [Concomitant]
  11. ALLEGRA [Concomitant]
  12. ZANTAC [Concomitant]
  13. NOVOLOG [Concomitant]
  14. SINGULAIR [Concomitant]
  15. FLONASE [Concomitant]

REACTIONS (5)
  - ABDOMINAL DISTENSION [None]
  - ATELECTASIS [None]
  - CONVULSION [None]
  - DEEP VEIN THROMBOSIS [None]
  - IMPAIRED GASTRIC EMPTYING [None]
